FAERS Safety Report 7068852-7 (Version None)
Quarter: 2010Q4

REPORT INFORMATION
  Report Type: 
  Country: None (occurrence: None)
  Receive Date: 20101028
  Receipt Date: 20101020
  Transmission Date: 20110411
  Serious: Yes (Hospitalization)
  Sender: FDA-Public Use
  Company Number: NL-TEVA-252819ISR

PATIENT
  Age: 2 Year
  Sex: Female

DRUGS (2)
  1. PROPRANOLOL [Suspect]
     Indication: CONGENITAL CARDIOVASCULAR ANOMALY
     Dosage: 2 MG/KG
  2. PREDNISONE [Suspect]
     Indication: CONGENITAL CARDIOVASCULAR ANOMALY
     Dosage: 0.5 MG/KG

REACTIONS (3)
  - BLOOD CORTISOL DECREASED [None]
  - HYPOGLYCAEMIA [None]
  - OFF LABEL USE [None]
